FAERS Safety Report 5254602-3 (Version None)
Quarter: 2007Q1

REPORT INFORMATION
  Report Type: 
  Country: None (occurrence: None)
  Receive Date: 20070302
  Receipt Date: 20070221
  Transmission Date: 20070707
  Serious: Yes (Other)
  Sender: FDA-Public Use
  Company Number: US-PFIZER INC-2007014100

PATIENT
  Sex: Female
  Weight: 88.5 kg

DRUGS (4)
  1. CHANTIX [Suspect]
     Indication: EX-SMOKER
     Route: 048
  2. CYMBALTA [Concomitant]
  3. PERCOCET [Concomitant]
  4. ZYRTEC [Concomitant]

REACTIONS (3)
  - ANXIETY [None]
  - CRYING [None]
  - DEPRESSION [None]
